FAERS Safety Report 6103128-3 (Version None)
Quarter: 2009Q1

REPORT INFORMATION
  Report Type: 
  Country: None (occurrence: None)
  Receive Date: 20090305
  Receipt Date: 20090225
  Transmission Date: 20090719
  Serious: Yes (Hospitalization, Other)
  Sender: FDA-Public Use
  Company Number: US-CELGENEUS-163-21880-08110958

PATIENT
  Sex: Male

DRUGS (1)
  1. REVLIMID [Suspect]
     Indication: MULTIPLE MYELOMA
     Route: 048
     Dates: start: 20080722, end: 20081105

REACTIONS (5)
  - CHEST PAIN [None]
  - FATIGUE [None]
  - PLEURISY [None]
  - PYREXIA [None]
  - THROMBOSIS [None]
